FAERS Safety Report 8811714 (Version 1)
Quarter: 2012Q4

REPORT INFORMATION
  Report Type: Spontaneous
  Country: JP (occurrence: None)
  Receive Date: 20120924
  Receipt Date: 20120924
  Transmission Date: 20130627
  Serious: Yes (Death)
  Sender: FDA-Public Use
  Company Number: VAL_00853_2012

PATIENT
  Age: 73 Year
  Sex: Male

DRUGS (3)
  1. PARLODEL [Suspect]
     Indication: PARKINSON^S DISEASE
     Dosage: (DF Oral)
     Route: 048
     Dates: end: 201205
  2. LASIX /00032601/ [Concomitant]
  3. DROXIDOPA [Concomitant]

REACTIONS (4)
  - Dysphagia [None]
  - Aphagia [None]
  - Pleurisy [None]
  - Pneumonia [None]
